FAERS Safety Report 18439941 (Version 2)
Quarter: 2020Q4

REPORT INFORMATION
  Report Type: Spontaneous
  Country: US (occurrence: US)
  Receive Date: 20201029
  Receipt Date: 20201106
  Transmission Date: 20210114
  Serious: Yes (Hospitalization)
  Sender: FDA-Public Use
  Company Number: US-AMGEN-USASP2020174230

PATIENT
  Age: 61 Year
  Sex: Female

DRUGS (2)
  1. ENBREL [Suspect]
     Active Substance: ETANERCEPT
     Indication: PSORIASIS
     Dosage: 50 MILLIGRAM
     Route: 058
     Dates: start: 20201021
  2. ENBREL [Suspect]
     Active Substance: ETANERCEPT
     Indication: RHEUMATOID ARTHRITIS
     Dosage: 50 MILLIGRAM
     Route: 058
     Dates: start: 202010, end: 202010

REACTIONS (9)
  - Palpitations [Recovered/Resolved]
  - Fibrin D dimer increased [Unknown]
  - Injection site swelling [Recovering/Resolving]
  - Injection site paraesthesia [Unknown]
  - Injection site pain [Not Recovered/Not Resolved]
  - Injection site rash [Recovering/Resolving]
  - Musculoskeletal discomfort [Recovered/Resolved]
  - Cold sweat [Unknown]
  - Injection site erythema [Recovering/Resolving]

NARRATIVE: CASE EVENT DATE: 202010
